FAERS Safety Report 5970725-5 (Version None)
Quarter: 2008Q4

REPORT INFORMATION
  Report Type: 
  Country: None (occurrence: None)
  Receive Date: 20081126
  Receipt Date: 20081111
  Transmission Date: 20090506
  Serious: No
  Sender: FDA-Public Use
  Company Number: US-ABBOTT-08P-163-0486917-00

PATIENT
  Sex: Female

DRUGS (3)
  1. SIMCOR [Suspect]
     Indication: BLOOD CHOLESTEROL INCREASED
     Dosage: 500/20 MG
     Dates: start: 20081003, end: 20081006
  2. CEPHALEXIN MONOHYDRATE [Concomitant]
     Indication: DRUG USE FOR UNKNOWN INDICATION
  3. FE GLUCONATE [Concomitant]
     Indication: DRUG USE FOR UNKNOWN INDICATION

REACTIONS (2)
  - PRURITUS [None]
  - SKIN BURNING SENSATION [None]
